FAERS Safety Report 9365028 (Version 1)
Quarter: 2013Q2

REPORT INFORMATION
  Report Type: Spontaneous
  Country: US (occurrence: US)
  Receive Date: 20130624
  Receipt Date: 20130624
  Transmission Date: 20140414
  Serious: No
  Sender: FDA-Public Use
  Company Number: US-PFIZER INC-2013183998

PATIENT
  Age: 47 Year
  Sex: Male
  Weight: 120.2 kg

DRUGS (3)
  1. XELJANZ [Suspect]
     Dosage: 5 MG, 2X/DAY
     Route: 048
  2. LEFLUNOMIDE [Concomitant]
     Dosage: 10 MG, UNK
  3. PREDNISONE [Concomitant]
     Dosage: 1 MG, UNK

REACTIONS (6)
  - Hypoaesthesia [Unknown]
  - Arthropathy [Unknown]
  - Pain [Unknown]
  - Rash pruritic [Unknown]
  - Infection [Unknown]
  - Psychogenic seizure [Unknown]
